FAERS Safety Report 8159672-0 (Version None)
Quarter: 2012Q1

REPORT INFORMATION
  Report Type: 
  Country: None (occurrence: None)
  Receive Date: 20120223
  Receipt Date: 20120216
  Transmission Date: 20120608
  Serious: Yes (Other)
  Sender: FDA-Public Use
  Company Number: CA-UCBSA-051792

PATIENT
  Age: 54 Year
  Sex: Female
  Weight: 91 kg

DRUGS (8)
  1. CIMZIA [Suspect]
     Indication: RHEUMATOID ARTHRITIS
     Dosage: 400 MG;EVERY 2 WKS X3
     Route: 058
     Dates: start: 20111209, end: 20120110
  2. FOLIC ACID [Concomitant]
     Indication: RHEUMATOID ARTHRITIS
     Route: 048
     Dates: start: 20100101
  3. METHOTREXATE [Concomitant]
     Indication: RHEUMATOID ARTHRITIS
     Route: 048
     Dates: start: 20100101
  4. CRESTOR [Concomitant]
     Indication: HYPERLIPIDAEMIA
     Route: 048
  5. PANTOPRAZOLE SODIUM [Concomitant]
     Indication: GASTRIC ULCER
     Route: 048
  6. HYDROCHLOROTHIAZIDE [Concomitant]
  7. ARTHROTEC [Concomitant]
     Indication: ANTIINFLAMMATORY THERAPY
     Route: 048
  8. ASPIRIN [Concomitant]

REACTIONS (1)
  - POST PROCEDURAL INFECTION [None]
